FAERS Safety Report 6945114-7 (Version None)
Quarter: 2010Q3

REPORT INFORMATION
  Report Type: 
  Country: None (occurrence: None)
  Receive Date: 20100827
  Receipt Date: 20100820
  Transmission Date: 20110219
  Serious: Yes (Other)
  Sender: FDA-Public Use
  Company Number: BE-JNJFOC-20100702446

PATIENT
  Sex: Male
  Weight: 89 kg

DRUGS (11)
  1. STELARA [Suspect]
     Indication: PSORIASIS
     Route: 058
     Dates: start: 20100122, end: 20100604
  2. STELARA [Suspect]
     Route: 058
     Dates: start: 20100122, end: 20100604
  3. ACTRAPID [Concomitant]
     Indication: DIABETES MELLITUS
     Route: 058
  4. DILTIAZEM HCL [Concomitant]
     Indication: HYPERTENSION
     Route: 048
  5. MODURETIC 5-50 [Concomitant]
     Indication: HYPERTENSION
     Route: 048
  6. CRESTOR [Concomitant]
     Indication: HYPERCHOLESTEROLAEMIA
     Route: 048
  7. OMIC [Concomitant]
     Indication: PROSTATIC DISORDER
     Route: 048
  8. ASAFLOW [Concomitant]
     Route: 048
  9. PERINDOPRIL ERBUMINE [Concomitant]
     Indication: HYPERTENSION
     Route: 048
  10. GLUCOPHAGE [Concomitant]
     Indication: DIABETES MELLITUS
     Route: 048
  11. LANTUS [Concomitant]
     Indication: DIABETES MELLITUS
     Route: 058

REACTIONS (3)
  - ANGIOEDEMA [None]
  - DYSPNOEA [None]
  - LARYNGEAL OEDEMA [None]
